FAERS Safety Report 5024846-4 (Version None)
Quarter: 2006Q2

REPORT INFORMATION
  Report Type: 
  Country: None (occurrence: None)
  Receive Date: 20060426
  Receipt Date: 20060131
  Transmission Date: 20061013
  Serious: Yes (Other)
  Sender: FDA-Public Use
  Company Number: 2006009348

PATIENT
  Age: 83 Year
  Sex: Female
  Weight: 68.0396 kg

DRUGS (7)
  1. LYRICA [Suspect]
     Indication: PAIN
     Dosage: 50MG QAM, 75MG QPM (2 IN 1 D)
     Dates: start: 20050101, end: 20060113
  2. CRESTOR [Concomitant]
  3. VERAPAMIL [Concomitant]
  4. ACTONEL [Concomitant]
  5. NAMENDA [Concomitant]
  6. BENICAR [Concomitant]
  7. DYAZIDE [Concomitant]

REACTIONS (3)
  - MUSCULAR WEAKNESS [None]
  - PAIN [None]
  - TREMOR [None]
